FAERS Safety Report 4655559-6 (Version None)
Quarter: 2005Q2

REPORT INFORMATION
  Report Type: 
  Country: None (occurrence: None)
  Receive Date: 20050505
  Receipt Date: 20050425
  Transmission Date: 20051028
  Serious: Yes (Hospitalization)
  Sender: FDA-Public Use
  Company Number: 2005065358

PATIENT
  Age: 64 Year
  Sex: Male
  Weight: 83.9154 kg

DRUGS (8)
  1. BEXTRA [Suspect]
     Indication: MUSCLE STRAIN
     Dosage: ORAL
     Route: 048
     Dates: start: 20030601, end: 20030701
  2. HYDROCHLOROTHIAZIDE [Concomitant]
  3. ATENOLOL [Concomitant]
  4. BENAZEPRIL HCL [Concomitant]
  5. SIMVASTATIN [Concomitant]
  6. OMEPRAZOLE [Concomitant]
  7. ALL OTHER THERAPEUTIC PRODUCTS (ALL OTHER THERAPEUTIC PRODUCTS) [Concomitant]
  8. METFORMIN HCL [Concomitant]

REACTIONS (2)
  - RASH PAPULAR [None]
  - RASH VESICULAR [None]
